FAERS Safety Report 9280498 (Version 1)
Quarter: 2013Q1

REPORT INFORMATION
  Report Type: Spontaneous
  Country: IN (occurrence: None)
  Receive Date: 20130225
  Receipt Date: 20130225
  Transmission Date: 20140127
  Serious: Yes (Hospitalization, Other)
  Sender: FDA-Public Use
  Company Number: 220532

PATIENT
  Age: 45 Year
  Sex: Female

DRUGS (1)
  1. INNOHEP [Suspect]
     Indication: THROMBOSIS PROPHYLAXIS
     Route: 058

REACTIONS (7)
  - Cerebral haematoma [None]
  - Intracranial pressure increased [None]
  - Brain midline shift [None]
  - Post procedural haematoma [None]
  - Brain herniation [None]
  - Post procedural complication [None]
  - Anaplastic oligodendroglioma [None]
